FAERS Safety Report 9508871 (Version 2)
Quarter: 2013Q4

REPORT INFORMATION
  Report Type: Spontaneous
  Country: US (occurrence: US)
  Receive Date: 20130909
  Receipt Date: 20131016
  Transmission Date: 20140711
  Serious: Yes (Other)
  Sender: FDA-Public Use
  Company Number: US-SHIRE-ALL1-2013-05857

PATIENT
  Age: 20 Year
  Sex: Male
  Weight: 88.44 kg

DRUGS (6)
  1. ADDERALL XR [Suspect]
     Indication: ATTENTION DEFICIT/HYPERACTIVITY DISORDER
     Dosage: 20 MG, 1X/DAY:QD
     Route: 048
     Dates: start: 20130807, end: 2013
  2. ADDERALL XR [Suspect]
     Dosage: 10 MG, 1X/DAY:QD
     Route: 048
     Dates: start: 2013
  3. PRISTIQ [Suspect]
     Indication: ANXIETY
     Dosage: 50 MG, UNKNOWN
     Route: 048
     Dates: start: 2013
  4. PRISTIQ [Suspect]
     Dosage: 50 MG, OTHER (EVERY OTHER DAY)
     Dates: start: 20130810, end: 2013
  5. XANAX [Concomitant]
     Indication: ANXIETY
     Dosage: 0.25 MG, UNKNOWN
     Route: 065
  6. FLEXERIL                           /00428402/ [Concomitant]
     Indication: PRODUCT USED FOR UNKNOWN INDICATION
     Dosage: 5 MG, AS REQ^D
     Route: 065

REACTIONS (10)
  - Serotonin syndrome [Recovered/Resolved]
  - Hallucination [Recovered/Resolved]
  - Dyspnoea [Recovered/Resolved]
  - Urticaria [Recovered/Resolved]
  - Tremor [Recovered/Resolved]
  - Serum serotonin increased [Recovered/Resolved]
  - Feeling abnormal [Recovered/Resolved]
  - Dizziness [Recovered/Resolved]
  - Insomnia [Recovered/Resolved]
  - Pyrexia [Recovered/Resolved]
